FAERS Safety Report 23627567 (Version 1)
Quarter: 2024Q1

REPORT INFORMATION
  Report Type: Spontaneous
  Country: SA (occurrence: SA)
  Receive Date: 20240313
  Receipt Date: 20240313
  Transmission Date: 20240410
  Serious: Yes (Hospitalization, Other)
  Sender: FDA-Public Use
  Company Number: SA-MLMSERVICE-20240301-4861236-1

PATIENT
  Age: 5 Year
  Sex: Male
  Weight: 12 kg

DRUGS (2)
  1. LEVETIRACETAM [Suspect]
     Active Substance: LEVETIRACETAM
     Indication: Seizure
     Dosage: UNK,  UNK (FOR }3YEARS)
  2. VALPROIC ACID [Suspect]
     Active Substance: VALPROIC ACID
     Indication: Seizure
     Dosage: FOR }3YEARS

REACTIONS (2)
  - Vitamin D deficiency [Unknown]
  - Epiphysiolysis [Recovered/Resolved]
